FAERS Safety Report 7262854-3 (Version None)
Quarter: 2011Q1

REPORT INFORMATION
  Report Type: 
  Country: None (occurrence: None)
  Receive Date: 20110130
  Receipt Date: 20100909
  Transmission Date: 20110831
  Serious: No
  Sender: FDA-Public Use
  Company Number: US-ABBOTT-10P-163-0670729-00

PATIENT
  Sex: Female
  Weight: 78.088 kg

DRUGS (2)
  1. HUMIRA [Suspect]
     Indication: PSORIATIC ARTHROPATHY
  2. CELEBREX [Concomitant]
     Indication: ARTHRITIS

REACTIONS (1)
  - INJECTION SITE PAIN [None]
